FAERS Safety Report 5015901-3 (Version None)
Quarter: 2006Q2

REPORT INFORMATION
  Report Type: 
  Country: None (occurrence: None)
  Receive Date: 20060526
  Receipt Date: 20060518
  Transmission Date: 20061013
  Serious: Yes (Death, Life-Threatening, Disabling)
  Sender: FDA-Public Use
  Company Number: 2004JP002271

PATIENT
  Age: 52 Year
  Sex: Female
  Weight: 42 kg

DRUGS (11)
  1. PROGRAF [Suspect]
     Indication: BONE MARROW TRANSPLANT
     Dosage: CONTINUOUS, IV DRIP
     Route: 041
     Dates: start: 20040323
  2. ZOVIRAX [Concomitant]
  3. GASTER D [Concomitant]
  4. MUCOSTA (REBAMIPIDE) [Concomitant]
  5. URSO 250 [Concomitant]
  6. FUNGUARD (MICAFUNGIN) [Concomitant]
  7. VANCOMYCIN HYDROCHLORIDE [Concomitant]
  8. MEROPEN (MEROPENEM) [Concomitant]
  9. NEUPOGEN [Concomitant]
  10. SOL MEDROL (METHYLPREDNISOLONE, SUCCINATE SODIUM) [Concomitant]
  11. FOY (GABEXATE MESILATE) [Concomitant]

REACTIONS (9)
  - CYTOKINE RELEASE SYNDROME [None]
  - ENGRAFTMENT SYNDROME [None]
  - HAEMORRHAGIC CEREBRAL INFARCTION [None]
  - INFECTION IN AN IMMUNOCOMPROMISED HOST [None]
  - LOSS OF CONSCIOUSNESS [None]
  - NUCLEAR MAGNETIC RESONANCE IMAGING BRAIN ABNORMAL [None]
  - RENAL FAILURE [None]
  - RESTLESSNESS [None]
  - THROMBOTIC MICROANGIOPATHY [None]
